FAERS Safety Report 4460824-1 (Version None)
Quarter: 2004Q3

REPORT INFORMATION
  Report Type: 
  Country: None (occurrence: None)
  Receive Date: 20040928
  Receipt Date: 20040810
  Transmission Date: 20050211
  Serious: No
  Sender: FDA-Public Use
  Company Number: US-GLAXOSMITHKLINE-A0521643A

PATIENT
  Age: 65 Year
  Sex: Female

DRUGS (6)
  1. ADVAIR DISKUS 100/50 [Suspect]
     Indication: ASTHMA
     Dosage: 1PUFF TWICE PER DAY
     Route: 055
  2. ALBUTEROL [Concomitant]
  3. ZYRTEC [Concomitant]
  4. PSEUDOEPHEDRINE HCL [Concomitant]
  5. ESTRACE [Concomitant]
  6. MAXZIDE [Concomitant]

REACTIONS (1)
  - DRUG INEFFECTIVE [None]
